FAERS Safety Report 5877368-2 (Version None)
Quarter: 2008Q3

REPORT INFORMATION
  Report Type: 
  Country: None (occurrence: None)
  Receive Date: 20080908
  Receipt Date: 20080903
  Transmission Date: 20090109
  Serious: Yes (Hospitalization)
  Sender: FDA-Public Use
  Company Number: SP02024

PATIENT
  Age: 64 Year
  Sex: Female

DRUGS (2)
  1. VISICOL (1 GRAM, TABLETS) [Suspect]
     Indication: COLONOSCOPY
     Dosage: 50 GM, ORAL
     Route: 048
     Dates: start: 20080724, end: 20080724
  2. SENNOSIDE [Concomitant]

REACTIONS (4)
  - ABDOMINAL PAIN [None]
  - COLONIC POLYP [None]
  - INTESTINAL OBSTRUCTION [None]
  - VOMITING [None]
